FAERS Safety Report 7303907-0 (Version None)
Quarter: 2011Q1

REPORT INFORMATION
  Report Type: 
  Country: None (occurrence: None)
  Receive Date: 20110221
  Receipt Date: 20110216
  Transmission Date: 20110831
  Serious: Yes (Hospitalization)
  Sender: FDA-Public Use
  Company Number: B0701151A

PATIENT
  Sex: Male

DRUGS (2)
  1. AUGMENTIN '125' [Suspect]
     Indication: INFLUENZA
     Dosage: 1G PER DAY
     Route: 048
     Dates: start: 20110203, end: 20110203
  2. TACHIPIRINA [Concomitant]

REACTIONS (3)
  - HEADACHE [None]
  - CONFUSIONAL STATE [None]
  - PRURITUS [None]
